FAERS Safety Report 7288609-1 (Version None)
Quarter: 2011Q1

REPORT INFORMATION
  Report Type: 
  Country: None (occurrence: None)
  Receive Date: 20110208
  Receipt Date: 20110208
  Transmission Date: 20110831
  Serious: No
  Sender: FDA-Public Use
  Company Number: None

PATIENT

DRUGS (1)
  1. LUNESTA [Suspect]
     Indication: INSOMNIA
     Dosage: ONE 3MG TABLET BEDTIME PO
     Route: 048
     Dates: start: 20110204, end: 20110204

REACTIONS (1)
  - DYSGEUSIA [None]
